FAERS Safety Report 8050264-0 (Version None)
Quarter: 2012Q1

REPORT INFORMATION
  Report Type: 
  Country: None (occurrence: None)
  Receive Date: 20120117
  Receipt Date: 20120110
  Transmission Date: 20120608
  Serious: Yes (Other)
  Sender: FDA-Public Use
  Company Number: US-PFIZER INC-2012008253

PATIENT
  Sex: Female

DRUGS (1)
  1. XALATAN [Suspect]
     Dosage: UNK

REACTIONS (4)
  - ABSCESS JAW [None]
  - PAIN [None]
  - LOSS OF CONSCIOUSNESS [None]
  - INTRAOCULAR PRESSURE INCREASED [None]
